FAERS Safety Report 18333611 (Version 1)
Quarter: 2020Q3

REPORT INFORMATION
  Report Type: Spontaneous
  Country: US (occurrence: US)
  Receive Date: 20200930
  Receipt Date: 20200930
  Transmission Date: 20201103
  Serious: Yes (Other)
  Sender: FDA-Public Use
  Company Number: None

PATIENT
  Age: 82 Year
  Sex: Male
  Weight: 73.7 kg

DRUGS (4)
  1. REMDESIVIR. [Suspect]
     Active Substance: REMDESIVIR
     Indication: COVID-19
     Route: 042
     Dates: start: 20200919, end: 20200923
  2. PROPOFOL. [Concomitant]
     Active Substance: PROPOFOL
     Dates: start: 20200920, end: 20200921
  3. MIDAZOLAM. [Concomitant]
     Active Substance: MIDAZOLAM
     Dates: start: 20200921
  4. FENTANYL. [Concomitant]
     Active Substance: FENTANYL
     Dates: start: 20200920

REACTIONS (2)
  - Bradycardia [None]
  - Heart rate increased [None]

NARRATIVE: CASE EVENT DATE: 20200920
